FAERS Safety Report 6569392-1 (Version None)
Quarter: 2010Q1

REPORT INFORMATION
  Report Type: 
  Country: None (occurrence: None)
  Receive Date: 20100204
  Receipt Date: 20100126
  Transmission Date: 20100710
  Serious: Yes (Hospitalization)
  Sender: FDA-Public Use
  Company Number: IT-RANBAXY-2010RR-30786

PATIENT
  Sex: Female

DRUGS (2)
  1. RAMIPRIL RANBAXY 5 MG CAPSULE RIGIDE [Suspect]
     Indication: HYPERTENSION
     Dosage: 5 MG, UNK
     Route: 048
     Dates: start: 20081230, end: 20081230
  2. LEXOTAN [Concomitant]

REACTIONS (3)
  - ASTHENIA [None]
  - TACHYCARDIA [None]
  - TREMOR [None]
